FAERS Safety Report 7465847-6 (Version None)
Quarter: 2011Q2

REPORT INFORMATION
  Report Type: 
  Country: None (occurrence: None)
  Receive Date: 20110509
  Receipt Date: 20100409
  Transmission Date: 20111010
  Serious: No
  Sender: FDA-Public Use
  Company Number: US-ALEXION-A201000413

PATIENT
  Sex: Male

DRUGS (2)
  1. SOLIRIS [Suspect]
     Dosage: 900 MG, Q2W
     Route: 042
     Dates: start: 20100223
  2. SOLIRIS [Suspect]
     Indication: PAROXYSMAL NOCTURNAL HAEMOGLOBINURIA
     Dosage: 600 MG, QW X 4 WEEKS
     Route: 042
     Dates: start: 20100125, end: 20100216

REACTIONS (4)
  - CHILLS [None]
  - CHEST PAIN [None]
  - HYPOTENSION [None]
  - CHEST DISCOMFORT [None]
